FAERS Safety Report 19855989 (Version 1)
Quarter: 2021Q3

REPORT INFORMATION
  Report Type: Report from Study
  Country: IT (occurrence: IT)
  Receive Date: 20210920
  Receipt Date: 20210920
  Transmission Date: 20211014
  Serious: Yes (Hospitalization)
  Sender: FDA-Public Use
  Company Number: IT-MYLANLABS-2021M1062211

PATIENT
  Age: 74 Year
  Sex: Female

DRUGS (3)
  1. PARACETAMOL [Suspect]
     Active Substance: ACETAMINOPHEN
     Indication: PRODUCT USED FOR UNKNOWN INDICATION
     Dosage: 8 DOSAGE FORM, TOTAL
     Route: 048
     Dates: start: 20210124, end: 20210124
  2. CIPRALEX [Suspect]
     Active Substance: ESCITALOPRAM OXALATE
     Indication: PRODUCT USED FOR UNKNOWN INDICATION
     Dosage: 28 DOSAGE FORM, TOTAL
     Route: 048
     Dates: start: 20210124, end: 20210124
  3. TRITTICO [Suspect]
     Active Substance: TRAZODONE HYDROCHLORIDE
     Indication: PRODUCT USED FOR UNKNOWN INDICATION
     Dosage: 48 DOSAGE FORM, TOTAL
     Route: 048
     Dates: start: 20210124, end: 20210124

REACTIONS (1)
  - Drug abuse [Recovering/Resolving]

NARRATIVE: CASE EVENT DATE: 20210124
